FAERS Safety Report 25714911 (Version 4)
Quarter: 2025Q4

REPORT INFORMATION
  Report Type: Spontaneous
  Country: AR (occurrence: AR)
  Receive Date: 20250822
  Receipt Date: 20251015
  Transmission Date: 20260119
  Serious: No
  Sender: PFIZER
  Company Number: AR-PFIZER INC-202500166876

PATIENT
  Age: 11 Year
  Sex: Female

DRUGS (1)
  1. GENOTROPIN [Suspect]
     Active Substance: SOMATROPIN
     Indication: Foetal growth restriction
     Dosage: 2 MG, 6 TIMES A WEEK
     Dates: start: 20240305

REACTIONS (1)
  - Device mechanical issue [Unknown]

NARRATIVE: CASE EVENT DATE: 20250701
